FAERS Safety Report 8582255-5 (Version None)
Quarter: 2012Q2

REPORT INFORMATION
  Report Type: 
  Country: None (occurrence: None)
  Receive Date: 20120423
  Receipt Date: 20090820
  Transmission Date: 20120825
  Serious: Yes (Hospitalization)
  Sender: FDA-Public Use
  Company Number: PHEH2009US09621

PATIENT
  Age: 59 Year
  Sex: Male
  Weight: 106.1 kg

DRUGS (1)
  1. EXJADE [Suspect]
     Indication: IRON OVERLOAD
     Dosage: 2000 MG, DAILY, ORAL
     Route: 048
     Dates: start: 20081212, end: 20090602

REACTIONS (1)
  - BLOOD CREATININE INCREASED [None]
